FAERS Safety Report 7280989-6 (Version None)
Quarter: 2011Q1

REPORT INFORMATION
  Report Type: 
  Country: None (occurrence: None)
  Receive Date: 20110208
  Receipt Date: 20110127
  Transmission Date: 20110831
  Serious: Yes (Other)
  Sender: FDA-Public Use
  Company Number: CHPA2011US01441

PATIENT
  Age: 68 Year
  Sex: Female
  Weight: 65.76 kg

DRUGS (2)
  1. TRANSDERM SCOP [Suspect]
     Indication: MOTION SICKNESS
     Dosage: UNK, UNK
     Route: 062
     Dates: start: 20070201, end: 20070201
  2. TRANSDERM SCOP [Suspect]
     Dosage: 1 PATCH PER 3 DAYS
     Route: 062
     Dates: start: 20080201, end: 20080201

REACTIONS (7)
  - VOMITING [None]
  - ABDOMINAL DISCOMFORT [None]
  - DISORIENTATION [None]
  - DIZZINESS [None]
  - HEADACHE [None]
  - HYPERTENSION [None]
  - VERTIGO [None]
